FAERS Safety Report 11792845 (Version 5)
Quarter: 2016Q1

REPORT INFORMATION
  Report Type: Spontaneous
  Country: BR (occurrence: BR)
  Receive Date: 20151202
  Receipt Date: 20160110
  Transmission Date: 20160525
  Serious: Yes (Hospitalization, Other)
  Sender: FDA-Public Use
  Company Number: PHHY2015BR156837

PATIENT
  Age: 65 Year
  Sex: Male
  Weight: 61 kg

DRUGS (4)
  1. TEGRETOL [Suspect]
     Active Substance: CARBAMAZEPINE
     Indication: SHOCK
     Dosage: 0.5 DF (HALF TABLET OF TEGRETOL CR 400 MG 60 CE), BID (IN THE MORNING AND AT NIGHT)
     Route: 048
     Dates: start: 201406
  2. TEGRETOL [Suspect]
     Active Substance: CARBAMAZEPINE
     Dosage: 1 DF (ONE TABLET OF TEGRETOL CR 400 MG 60 CE), QHS (AT NIGHT)
     Route: 048
  3. TEGRETOL [Suspect]
     Active Substance: CARBAMAZEPINE
     Indication: FACIAL NEURALGIA
     Dosage: 2 DF (TWO TABLETS OF TEGRETOL CR 400 MG 60 CE), QD
     Route: 048
  4. LEVOID [Concomitant]
     Active Substance: LEVOTHYROXINE
     Indication: HYPOTHYROIDISM
     Dosage: 1 DF, QD
     Route: 048

REACTIONS (5)
  - Product use issue [Unknown]
  - Head and neck cancer [Recovering/Resolving]
  - Shock [Recovered/Resolved]
  - Nodule [Recovered/Resolved]
  - Irritability [Recovered/Resolved]

NARRATIVE: CASE EVENT DATE: 201502
